FAERS Safety Report 22350296 (Version 1)
Quarter: 2023Q2

REPORT INFORMATION
  Report Type: Spontaneous
  Country: FR (occurrence: FR)
  Receive Date: 20230522
  Receipt Date: 20230522
  Transmission Date: 20230721
  Serious: Yes (Death, Other)
  Sender: FDA-Public Use
  Company Number: None

PATIENT
  Age: 38 Week
  Sex: Male

DRUGS (5)
  1. CYCLOPHOSPHAMIDE [Suspect]
     Active Substance: CYCLOPHOSPHAMIDE
     Indication: Breast cancer
     Dosage: 600 MG/M2, EVERY 21 DAYS, STOP DATE: OCT-2021, DOSAGE FORM: 1FP
     Route: 064
     Dates: start: 20210809
  2. PACLITAXEL [Suspect]
     Active Substance: PACLITAXEL
     Indication: Breast cancer
     Dosage: 80MG/M2/WEEK, QD, DOSAGE FORM: 1FP
     Route: 064
     Dates: start: 20211108, end: 20211220
  3. PERJETA [Suspect]
     Active Substance: PERTUZUMAB
     Indication: Breast cancer
     Dosage: 840 (THEN) 420 MG, DOSAGE FORM: 1FP
     Route: 064
     Dates: start: 20211108, end: 20211220
  4. HERCEPTIN [Suspect]
     Active Substance: TRASTUZUMAB
     Indication: Breast cancer
     Dosage: HERCEPTIN 8 MG/KG C1, THEN 6 MG/KG EVERY 21 DAYS, DOSAGE FORM: 1FP, (MAMMAL/HAMSTER/CHO CELLS)
     Route: 064
     Dates: start: 20211108, end: 20211220
  5. EPIRUBICIN [Suspect]
     Active Substance: EPIRUBICIN
     Indication: Breast cancer
     Dosage: 100 MG/M2, EVERY 21 DAYS, STOP DATE: OCT-2021, DOSAGE FORM: 1FP
     Route: 064
     Dates: start: 20210809

REACTIONS (3)
  - Renal aplasia [Fatal]
  - Foetal growth abnormality [Fatal]
  - Oligohydramnios [Fatal]

NARRATIVE: CASE EVENT DATE: 20220118
